FAERS Safety Report 9505529 (Version 1)
Quarter: 2013Q1

REPORT INFORMATION
  Report Type: Spontaneous
  Country: US (occurrence: None)
  Receive Date: 20130220
  Receipt Date: 20130220
  Transmission Date: 20140127
  Serious: No
  Sender: FDA-Public Use
  Company Number: 1000039669

PATIENT
  Age: 54 Year
  Sex: Female

DRUGS (3)
  1. VIIBRYD [Suspect]
     Indication: MYALGIA
     Route: 048
     Dates: start: 201207, end: 2012
  2. XANAX  (ALPRAZOLAM) (ALPRAZOLAM) [Concomitant]
  3. PREMPRO (CONJUGATED ESTROGENS, MEDROXYPROGESTERONE) (CONJUGATED ESTROGENS, MEDROXYPROGESTERONE) [Concomitant]

REACTIONS (6)
  - Chest pain [None]
  - Insomnia [None]
  - Anxiety [None]
  - Anger [None]
  - Irritability [None]
  - Medication error [None]
